FAERS Safety Report 9424193 (Version 2)
Quarter: 2013Q4

REPORT INFORMATION
  Report Type: Spontaneous
  Country: IT (occurrence: IT)
  Receive Date: 20130729
  Receipt Date: 20131107
  Transmission Date: 20140711
  Serious: Yes (Other)
  Sender: FDA-Public Use
  Company Number: IT-ROCHE-1253713

PATIENT
  Age: 65 Year
  Sex: Female
  Weight: 63 kg

DRUGS (3)
  1. HERCEPTIN [Suspect]
     Indication: BREAST CANCER
     Route: 042
     Dates: start: 20130114, end: 20130204
  2. RANIDIL [Concomitant]
     Route: 042
  3. SOLDESAM [Concomitant]
     Route: 042

REACTIONS (4)
  - Dizziness [Unknown]
  - Epistaxis [Unknown]
  - Formication [Unknown]
  - Pain in extremity [Unknown]
